FAERS Safety Report 18492307 (Version 2)
Quarter: 2020Q4

REPORT INFORMATION
  Report Type: Spontaneous
  Country: US (occurrence: US)
  Receive Date: 20201111
  Receipt Date: 20201215
  Transmission Date: 20210114
  Serious: No
  Sender: FDA-Public Use
  Company Number: US-CYCLE PHARMACEUTICALS LTD-2020-CYC-000025

PATIENT
  Sex: Male
  Weight: 3.05 kg

DRUGS (1)
  1. NITYR [Suspect]
     Active Substance: NITISINONE
     Indication: TYROSINAEMIA
     Dosage: 0.5 MG/KG, BID
     Route: 048
     Dates: start: 20201030

REACTIONS (2)
  - Off label use [Unknown]
  - Intentional underdose [Unknown]
